APPROVED DRUG PRODUCT: POTASSIUM CHLORIDE
Active Ingredient: POTASSIUM CHLORIDE
Strength: 20MEQ
Dosage Form/Route: TABLET, EXTENDED RELEASE;ORAL
Application: A214728 | Product #003
Applicant: AUROBINDO PHARMA LTD
Approved: Mar 31, 2021 | RLD: No | RS: No | Type: DISCN